FAERS Safety Report 8185513-1 (Version None)
Quarter: 2012Q1

REPORT INFORMATION
  Report Type: 
  Country: None (occurrence: None)
  Receive Date: 20120305
  Receipt Date: 20120223
  Transmission Date: 20120608
  Serious: Yes (Hospitalization, Other)
  Sender: FDA-Public Use
  Company Number: ES-PFIZER INC-2012047963

PATIENT
  Age: 47 Year
  Sex: Female

DRUGS (4)
  1. SERTRALINE HYDROCHLORIDE [Suspect]
     Indication: DEPRESSION
     Dosage: 100 MG, 1X/DAY
     Route: 048
     Dates: start: 20060101, end: 20111018
  2. FAMCICLOVIR [Concomitant]
     Dosage: UNK
     Dates: start: 20111010, end: 20111017
  3. RISPERDAL [Interacting]
     Indication: SCHIZOAFFECTIVE DISORDER
     Dosage: 3 MG, 3X/DAY
     Route: 048
     Dates: start: 20060101, end: 20111018
  4. RHODOGIL [Concomitant]
     Dosage: 750000 IU/ 125 MG, UNK
     Dates: start: 20111010, end: 20111017

REACTIONS (5)
  - HYPONATRAEMIA [None]
  - DRUG INTERACTION [None]
  - EMPTY SELLA SYNDROME [None]
  - INAPPROPRIATE ANTIDIURETIC HORMONE SECRETION [None]
  - ALCOHOLISM [None]
